FAERS Safety Report 9774629 (Version 1)
Quarter: 2013Q4

REPORT INFORMATION
  Report Type: Spontaneous
  Country: US (occurrence: None)
  Receive Date: 20131219
  Receipt Date: 20131219
  Transmission Date: 20140711
  Serious: Yes (Other)
  Sender: FDA-Public Use
  Company Number: None

PATIENT
  Age: 65 Year
  Sex: Male
  Weight: 95.1 kg

DRUGS (4)
  1. LIRAGLUTIDE [Suspect]
     Indication: CARDIAC FAILURE
     Route: 058
     Dates: start: 20131009, end: 20131102
  2. DULERA [Concomitant]
  3. DEMADEX [Concomitant]
  4. XARELTO [Concomitant]

REACTIONS (10)
  - Acute respiratory failure [None]
  - Pulmonary oedema [None]
  - Hypertension [None]
  - Constipation [None]
  - Ileus [None]
  - Cardiac failure acute [None]
  - Malabsorption [None]
  - Fatigue [None]
  - Blood creatinine increased [None]
  - Blood potassium decreased [None]
